FAERS Safety Report 4542255-9 (Version None)
Quarter: 2004Q4

REPORT INFORMATION
  Report Type: 
  Country: None (occurrence: None)
  Receive Date: 20041227
  Receipt Date: 20041206
  Transmission Date: 20050328
  Serious: Yes (Other)
  Sender: FDA-Public Use
  Company Number: 210941

PATIENT
  Age: 61 Year
  Sex: Female

DRUGS (1)
  1. RITUXAN [Suspect]
     Indication: WALDENSTROM'S MACROGLOBULINAEMIA
     Dosage: X4
     Dates: end: 20031101

REACTIONS (4)
  - BLOOD IMMUNOGLOBULIN M INCREASED [None]
  - COUGH [None]
  - DYSPNOEA EXERTIONAL [None]
  - PARALYSIS [None]
